FAERS Safety Report 4623243-0 (Version None)
Quarter: 2005Q1

REPORT INFORMATION
  Report Type: 
  Country: None (occurrence: None)
  Receive Date: 20050329
  Receipt Date: 20050308
  Transmission Date: 20050727
  Serious: Yes (Death, Other)
  Sender: FDA-Public Use
  Company Number: US_0501110653

PATIENT
  Sex: Male

DRUGS (2)
  1. ZYPREXA [Suspect]
     Indication: DEPRESSION
     Dates: start: 19990601
  2. ZYPREXA [Suspect]
     Indication: SCHIZOPHRENIA
     Dates: start: 19990601

REACTIONS (2)
  - KETOACIDOSIS [None]
  - PANCREATITIS [None]
